FAERS Safety Report 25056504 (Version 1)
Quarter: 2025Q1

REPORT INFORMATION
  Report Type: Spontaneous
  Country: US (occurrence: US)
  Receive Date: 20250310
  Receipt Date: 20250310
  Transmission Date: 20250409
  Serious: No
  Sender: EMCURE PHARMACEUTICALS LTD
  Company Number: US-AVET LIFESCIENCES LTD-2025-AVET-000057

PATIENT

DRUGS (4)
  1. HYDROXYZINE HYDROCHLORIDE [Suspect]
     Active Substance: HYDROXYZINE HYDROCHLORIDE
     Indication: Hypersensitivity
     Route: 065
  2. HYDROXYZINE HYDROCHLORIDE [Suspect]
     Active Substance: HYDROXYZINE HYDROCHLORIDE
     Indication: Insomnia
  3. HYDROXYZINE HYDROCHLORIDE [Suspect]
     Active Substance: HYDROXYZINE HYDROCHLORIDE
     Indication: Anxiety
  4. LORAZEPAM [Concomitant]
     Active Substance: LORAZEPAM

REACTIONS (1)
  - Rash maculo-papular [Recovered/Resolved]
